FAERS Safety Report 9773536 (Version 1)
Quarter: 2013Q4

REPORT INFORMATION
  Report Type: Report from Study
  Country: US (occurrence: US)
  Receive Date: 20131219
  Receipt Date: 20131219
  Transmission Date: 20140711
  Serious: Yes (Hospitalization, Other)
  Sender: FDA-Public Use
  Company Number: US-ABBVIE-13P-163-1177867-00

PATIENT
  Sex: Male
  Weight: 81.72 kg

DRUGS (12)
  1. HUMIRA [Suspect]
     Indication: OSTEOARTHRITIS
     Dates: end: 2011
  2. OMEPRAZOLE [Concomitant]
     Indication: GASTRIC DISORDER
  3. OMEPRAZOLE [Concomitant]
     Indication: PROPHYLAXIS
  4. CELEBREX [Concomitant]
     Indication: PSORIATIC ARTHROPATHY
  5. PRISTIQ [Concomitant]
     Indication: ANXIETY
  6. MICARDIS [Concomitant]
     Indication: HYPERTENSION
  7. FOLIC ACID [Concomitant]
     Indication: PSORIATIC ARTHROPATHY
  8. SYMBICORT [Concomitant]
     Indication: ASTHMA
  9. GLUCOSAMINE + CHONDROITIN [Concomitant]
     Indication: PSORIATIC ARTHROPATHY
  10. METAMUCIL [Concomitant]
     Indication: PRODUCT USED FOR UNKNOWN INDICATION
  11. ZYRTEC [Concomitant]
     Indication: HYPERSENSITIVITY
  12. ALBUTEROL [Concomitant]
     Indication: ASTHMA

REACTIONS (10)
  - Rotator cuff syndrome [Unknown]
  - Exostosis [Unknown]
  - Mass [Unknown]
  - Thrombosis [Recovered/Resolved]
  - Spinal fusion surgery [Unknown]
  - Spinal fusion surgery [Unknown]
  - Iritis [Recovering/Resolving]
  - Bronchitis [Recovered/Resolved]
  - Psoriasis [Not Recovered/Not Resolved]
  - Pain [Unknown]
